FAERS Safety Report 24043990 (Version 1)
Quarter: 2024Q3

REPORT INFORMATION
  Report Type: Spontaneous
  Country: US (occurrence: US)
  Receive Date: 20240703
  Receipt Date: 20240703
  Transmission Date: 20241016
  Serious: No
  Sender: BRISTOL MYERS SQUIBB
  Company Number: US-BRISTOL-MYERS SQUIBB COMPANY-2024-105860

PATIENT
  Age: 67 Year
  Sex: Female
  Weight: 75.75 kg

DRUGS (1)
  1. REVLIMID [Suspect]
     Active Substance: LENALIDOMIDE
     Indication: Plasma cell myeloma
     Dosage: FREQ: 2 WEEKS ON , 1 WEEK OFF
     Route: 048

REACTIONS (3)
  - Vision blurred [Recovering/Resolving]
  - Hordeolum [Recovering/Resolving]
  - Off label use [Recovering/Resolving]
